FAERS Safety Report 15515503 (Version 8)
Quarter: 2020Q3

REPORT INFORMATION
  Report Type: Spontaneous
  Country: US (occurrence: US)
  Receive Date: 20181017
  Receipt Date: 20200724
  Transmission Date: 20201102
  Serious: Yes (Other)
  Sender: FDA-Public Use
  Company Number: US-HTU-2018US017586

PATIENT
  Sex: Female

DRUGS (4)
  1. AVEENO [Concomitant]
     Active Substance: DIMETHICONE\HOMOSALATE\OCTINOXATE\OCTISALATE\TITANIUM DIOXIDE
     Indication: APPLICATION SITE PAIN
  2. VALCHLOR [Suspect]
     Active Substance: MECHLORETHAMINE
     Dosage: THIN FILM, EVERY OTHER NIGHT
     Route: 061
  3. VALCHLOR [Suspect]
     Active Substance: MECHLORETHAMINE
     Indication: CUTANEOUS T-CELL LYMPHOMA
     Dosage: UNK, UNKNOWN
     Route: 061
     Dates: start: 20180827
  4. VALCHLOR [Suspect]
     Active Substance: MECHLORETHAMINE
     Dosage: THIN FILM, NIGHTLY, IF NO IRRITATION
     Route: 061

REACTIONS (16)
  - Application site erythema [Not Recovered/Not Resolved]
  - Ill-defined disorder [Unknown]
  - Product preparation issue [Unknown]
  - Rash [Unknown]
  - Off label use [Unknown]
  - Alopecia [Unknown]
  - Application site irritation [Not Recovered/Not Resolved]
  - Skin irritation [Unknown]
  - Cutaneous T-cell lymphoma [Not Recovered/Not Resolved]
  - Application site pain [Recovered/Resolved]
  - Intentional dose omission [Unknown]
  - Therapy non-responder [Unknown]
  - Condition aggravated [Not Recovered/Not Resolved]
  - Haemorrhage [Unknown]
  - Intentional product misuse [Unknown]
  - Application site vesicles [Not Recovered/Not Resolved]
